FAERS Safety Report 6559216-0 (Version None)
Quarter: 2010Q1

REPORT INFORMATION
  Report Type: 
  Country: None (occurrence: None)
  Receive Date: 20100129
  Receipt Date: 20091020
  Transmission Date: 20100710
  Serious: No
  Sender: FDA-Public Use
  Company Number: PR-ABBOTT-09P-131-0604036-00

PATIENT
  Age: 57 Year
  Sex: Female
  Weight: 86.26 kg

DRUGS (6)
  1. HUMIRA [Suspect]
     Indication: RHEUMATOID ARTHRITIS
     Route: 058
  2. ARAVA [Concomitant]
     Indication: DRUG USE FOR UNKNOWN INDICATION
  3. PREDNISONE [Concomitant]
     Indication: RHEUMATOID ARTHRITIS
     Route: 048
  4. COUMADIN [Concomitant]
     Indication: VENOUS INSUFFICIENCY
     Route: 048
  5. COUMADIN [Concomitant]
     Route: 048
  6. AMARYL [Concomitant]
     Indication: DIABETES MELLITUS
     Route: 048

REACTIONS (4)
  - ARTHRALGIA [None]
  - FLUID RETENTION [None]
  - GENERALISED OEDEMA [None]
  - INFLUENZA LIKE ILLNESS [None]
